FAERS Safety Report 9668723 (Version 2)
Quarter: 2014Q1

REPORT INFORMATION
  Report Type: Spontaneous
  Country: CA (occurrence: CA)
  Receive Date: 20131105
  Receipt Date: 20140217
  Transmission Date: 20141002
  Serious: Yes (Other)
  Sender: FDA-Public Use
  Company Number: CA-ELI_LILLY_AND_COMPANY-CA201310007805

PATIENT
  Age: 31 Year
  Sex: Female

DRUGS (7)
  1. CYMBALTA [Suspect]
     Indication: DEPRESSION
     Dosage: 60 MG, QD
     Route: 065
     Dates: start: 2012
  2. HYDROMORPHONE [Suspect]
     Indication: PRODUCT USED FOR UNKNOWN INDICATION
     Dosage: 30 MG, QD
     Route: 065
     Dates: start: 2008, end: 2012
  3. SUBOXONE [Suspect]
     Indication: DRUG DEPENDENCE
     Dosage: 12 MG, QD
     Route: 060
     Dates: start: 201011, end: 20121217
  4. SUBOXONE [Suspect]
     Dosage: 12 MG, QD
     Route: 060
     Dates: start: 2013
  5. SUBUTEX [Suspect]
     Indication: DRUG DEPENDENCE
     Dosage: 12 MG, QD
     Route: 065
     Dates: start: 2012, end: 2013
  6. TECTA [Suspect]
     Indication: GASTROOESOPHAGEAL REFLUX DISEASE
     Dosage: 40 MG, QD
     Dates: start: 2012
  7. NICOTINE [Suspect]
     Indication: PRODUCT USED FOR UNKNOWN INDICATION
     Dosage: 10 DF, QD
     Route: 055
     Dates: start: 2012, end: 2013

REACTIONS (5)
  - Hepatitis C [Unknown]
  - Placenta praevia [Recovered/Resolved]
  - Drug abuse [Recovered/Resolved]
  - Exposure during pregnancy [Recovered/Resolved]
  - Exposure during breast feeding [Not Recovered/Not Resolved]
